FAERS Safety Report 19392746 (Version 2)
Quarter: 2021Q3

REPORT INFORMATION
  Report Type: Report from Study
  Country: US (occurrence: US)
  Receive Date: 20210609
  Receipt Date: 20210713
  Transmission Date: 20211014
  Serious: Yes (Other)
  Sender: FDA-Public Use
  Company Number: NVSC2021US124054

PATIENT
  Sex: Female

DRUGS (1)
  1. XIIDRA [Suspect]
     Active Substance: LIFITEGRAST
     Indication: PRODUCT USED FOR UNKNOWN INDICATION
     Dosage: UNK (50 MG/ML)
     Route: 047

REACTIONS (7)
  - Limb injury [Unknown]
  - Skin laceration [Unknown]
  - Haemorrhage [Unknown]
  - Eye disorder [Unknown]
  - Abdominal pain upper [Unknown]
  - Fall [Unknown]
  - Nervous system disorder [Unknown]
